FAERS Safety Report 6013449-0 (Version None)
Quarter: 2008Q4

REPORT INFORMATION
  Report Type: 
  Country: None (occurrence: None)
  Receive Date: 20081219
  Receipt Date: 20081208
  Transmission Date: 20090506
  Serious: Yes (Hospitalization)
  Sender: FDA-Public Use
  Company Number: US-PFIZER INC-2005165630

PATIENT
  Sex: Female
  Weight: 79 kg

DRUGS (5)
  1. SUNITINIB MALATE [Suspect]
     Indication: METASTATIC RENAL CELL CARCINOMA
     Dosage: 50 MG, 1X/DAY, 4WK ON 2WK OFF
     Route: 048
     Dates: start: 20050207, end: 20050717
  2. SUNITINIB MALATE [Suspect]
     Dosage: 37.5 MG, 1X/DAY, 4WK ON 2WK OFF
     Route: 048
     Dates: start: 20050815, end: 20051204
  3. HYDROCHLOROTHIAZIDE [Concomitant]
     Indication: HYPERTENSION
     Route: 048
     Dates: start: 19940101, end: 20051222
  4. IRON [Concomitant]
     Route: 048
     Dates: start: 20050101
  5. PROCRIT [Concomitant]
     Route: 058
     Dates: start: 20050523

REACTIONS (8)
  - ASCITES [None]
  - HAEMATOCHEZIA [None]
  - HAEMATURIA [None]
  - HYPOTHYROIDISM [None]
  - MENTAL STATUS CHANGES [None]
  - THROMBOCYTOPENIA [None]
  - URINARY TRACT INFECTION [None]
  - UROSEPSIS [None]
